FAERS Safety Report 12179744 (Version 1)
Quarter: 2016Q1

REPORT INFORMATION
  Report Type: Spontaneous
  Country: FR (occurrence: FR)
  Receive Date: 20160315
  Receipt Date: 20160315
  Transmission Date: 20160526
  Serious: Yes (Other)
  Sender: FDA-Public Use
  Company Number: FR-PFIZER INC-2016153462

PATIENT
  Age: 72 Year
  Sex: Female

DRUGS (11)
  1. SMECTA [Concomitant]
     Active Substance: MONTMORILLONITE
     Dosage: UNK
  2. LETROZOLE. [Concomitant]
     Active Substance: LETROZOLE
     Dosage: UNK
  3. PREVISCAN [Suspect]
     Active Substance: FLUINDIONE
     Indication: ATRIAL FIBRILLATION
     Dosage: UNK
     Route: 048
     Dates: start: 20160108
  4. PRINCI-B [Concomitant]
     Dosage: UNK
  5. ZECLAR [Suspect]
     Active Substance: CLARITHROMYCIN
     Indication: LUNG DISORDER
     Dosage: 2 DF, 2X/DAY
     Route: 048
     Dates: start: 20151120
  6. ETHAMBUTOL [Suspect]
     Active Substance: ETHAMBUTOL HYDROCHLORIDE
     Indication: LUNG DISORDER
     Dosage: UNK
     Route: 048
     Dates: start: 20151120, end: 20160121
  7. IMOVANE [Concomitant]
     Active Substance: ZOPICLONE
     Dosage: UNK
  8. RIFABUTIN. [Suspect]
     Active Substance: RIFABUTIN
     Indication: LUNG DISORDER
     Dosage: 150 MG, 3X/DAY
     Route: 048
     Dates: start: 20151120, end: 20160211
  9. CORDARONE [Suspect]
     Active Substance: AMIODARONE HYDROCHLORIDE
     Indication: ATRIAL FIBRILLATION
     Dosage: 1 DF, DAILY
     Route: 048
     Dates: start: 20160108, end: 20160211
  10. NICOBION [Concomitant]
     Active Substance: NIACINAMIDE
     Dosage: UNK
  11. TEMESTA [Concomitant]
     Active Substance: LORAZEPAM
     Dosage: UNK

REACTIONS (1)
  - Iridocyclitis [Recovering/Resolving]

NARRATIVE: CASE EVENT DATE: 20160115
